FAERS Safety Report 7445668-0 (Version None)
Quarter: 2011Q2

REPORT INFORMATION
  Report Type: 
  Country: None (occurrence: None)
  Receive Date: 20110420
  Receipt Date: 20110317
  Transmission Date: 20111010
  Serious: No
  Sender: FDA-Public Use
  Company Number: 2011-00105

PATIENT
  Age: 86 Year
  Sex: Male
  Weight: 85.7298 kg

DRUGS (6)
  1. DYAZIDE [Concomitant]
  2. ZICAM COLD REMEDY RAPIDMELTS WITH VITAMIN C [Suspect]
     Dosage: AS DIRECTED X 2 DAYS
     Dates: start: 20110316, end: 20110317
  3. FLOMAX [Concomitant]
  4. ZOCOR [Concomitant]
  5. LISINOPRIL [Concomitant]
  6. TENORMIN [Concomitant]

REACTIONS (1)
  - AGEUSIA [None]
